FAERS Safety Report 5615551-1 (Version None)
Quarter: 2008Q1

REPORT INFORMATION
  Report Type: 
  Country: None (occurrence: None)
  Receive Date: 20080205
  Receipt Date: 20080205
  Transmission Date: 20080703
  Serious: Yes (Other)
  Sender: FDA-Public Use
  Company Number: None

PATIENT
  Age: 40 Year
  Sex: Female
  Weight: 79.3795 kg

DRUGS (1)
  1. COLGATE TOOTHPASTE ^CARRIBEAN COOL^  PROCTOR AND GAMBLE [Suspect]
     Indication: DENTAL DISORDER PROPHYLAXIS
     Dosage: HALF IN. RIBBON  2-3 TIMES A DAY DENTAL
     Route: 004
     Dates: start: 20071128, end: 20080130

REACTIONS (9)
  - BLISTER [None]
  - ERYTHEMA [None]
  - ORAL PRURITUS [None]
  - RASH [None]
  - REACTION TO DRUG EXCIPIENTS [None]
  - SKIN INFLAMMATION [None]
  - SKIN ULCER [None]
  - VULVOVAGINAL PRURITUS [None]
  - WOUND SECRETION [None]
